FAERS Safety Report 12682976 (Version 1)
Quarter: 2016Q3

REPORT INFORMATION
  Report Type: Other
  Country: US (occurrence: US)
  Receive Date: 20160825
  Receipt Date: 20160825
  Transmission Date: 20161109
  Serious: Yes (Hospitalization)
  Sender: FDA-Public Use
  Company Number: US-NOVEL LABORATORIES, INC-2016-03790

PATIENT
  Age: 63 Year
  Sex: Male

DRUGS (2)
  1. MORPHINE [Suspect]
     Active Substance: MORPHINE
     Indication: PRODUCT USED FOR UNKNOWN INDICATION
     Route: 065
  2. INTERFERON [Concomitant]
     Active Substance: INTERFERON
     Indication: HEPATITIS C
     Route: 065

REACTIONS (6)
  - Hypopnoea [Unknown]
  - Acute kidney injury [Unknown]
  - Leukoencephalopathy [Unknown]
  - Pneumonia aspiration [Unknown]
  - Overdose [Unknown]
  - Loss of consciousness [Unknown]
